FAERS Safety Report 19732968 (Version 1)
Quarter: 2021Q3

REPORT INFORMATION
  Report Type: Spontaneous
  Country: US (occurrence: US)
  Receive Date: 20210822
  Receipt Date: 20210822
  Transmission Date: 20211014
  Serious: No
  Sender: FDA-Public Use
  Company Number: None

PATIENT
  Age: 38 Year
  Sex: Female
  Weight: 76.6 kg

DRUGS (2)
  1. CASIRIVIMAB/IMDEVIMAB [Concomitant]
     Active Substance: CASIRIVIMAB\IMDEVIMAB
     Dates: start: 20210818, end: 20210818
  2. CASIRIVIMAB/IMDEVIMAB [Suspect]
     Active Substance: CASIRIVIMAB\IMDEVIMAB
     Indication: SARS-COV-2 TEST POSITIVE
     Route: 040
     Dates: start: 20210818, end: 20210818

REACTIONS (4)
  - Infusion related reaction [None]
  - Cough [None]
  - Painful respiration [None]
  - Chest pain [None]

NARRATIVE: CASE EVENT DATE: 20210818
